FAERS Safety Report 11379520 (Version 2)
Quarter: 2015Q4

REPORT INFORMATION
  Report Type: Spontaneous
  Country: US (occurrence: US)
  Receive Date: 20150814
  Receipt Date: 20151001
  Transmission Date: 20160304
  Serious: Yes (Death, Hospitalization)
  Sender: FDA-Public Use
  Company Number: US-ROCHE-ITM201503IM011255

PATIENT
  Age: 76 Year
  Sex: Female
  Weight: 90 kg

DRUGS (1)
  1. ESBRIET [Suspect]
     Active Substance: PIRFENIDONE
     Indication: IDIOPATHIC PULMONARY FIBROSIS
     Dosage: 3 267 CAPSULES THRICE DAILY WITH FOOD
     Route: 048
     Dates: start: 20150116

REACTIONS (3)
  - Cardiac failure congestive [Fatal]
  - Pulmonary valve stenosis [Fatal]
  - Cardiac failure [Unknown]

NARRATIVE: CASE EVENT DATE: 20150218
